FAERS Safety Report 18996072 (Version 1)
Quarter: 2021Q1

REPORT INFORMATION
  Report Type: Spontaneous
  Country: CO (occurrence: CO)
  Receive Date: 20210311
  Receipt Date: 20210311
  Transmission Date: 20210420
  Serious: Yes (Death, Life-Threatening, Hospitalization, Other)
  Sender: FDA-Public Use
  Company Number: CO-SA-2021SA081190

PATIENT
  Age: 31 Year
  Sex: Female

DRUGS (1)
  1. CLEXANE [Suspect]
     Active Substance: ENOXAPARIN SODIUM
     Indication: ANTICOAGULANT THERAPY
     Dosage: 60 MG, BID (EVERY 12 HOURS)
     Route: 065

REACTIONS (5)
  - Hypovolaemic shock [Fatal]
  - Hypotension [Unknown]
  - Haemoglobin decreased [Unknown]
  - Haemorrhage [Unknown]
  - Abdominal pain [Unknown]

NARRATIVE: CASE EVENT DATE: 20210304
